FAERS Safety Report 7075234-0 (Version None)
Quarter: 2010Q4

REPORT INFORMATION
  Report Type: 
  Country: None (occurrence: None)
  Receive Date: 20101030
  Receipt Date: 20100616
  Transmission Date: 20110411
  Serious: No
  Sender: FDA-Public Use
  Company Number: US-WYE-H15902210

PATIENT
  Age: 75 Year
  Sex: Female
  Weight: 74 kg

DRUGS (4)
  1. ADVIL PM [Suspect]
     Indication: INSOMNIA
     Dosage: 1 CAPLET PER DAY
     Route: 048
     Dates: start: 20100612, end: 20100614
  2. VITAMIN E [Concomitant]
  3. LISINOPRIL [Concomitant]
  4. ZOCOR [Concomitant]

REACTIONS (1)
  - DIARRHOEA [None]
